FAERS Safety Report 24385288 (Version 1)
Quarter: 2024Q4

REPORT INFORMATION
  Report Type: Spontaneous
  Country: US (occurrence: US)
  Receive Date: 20241001
  Receipt Date: 20241001
  Transmission Date: 20250114
  Serious: No
  Sender: SANOFI AVENTIS
  Company Number: US-SA-2024SA280297

PATIENT
  Sex: Male
  Weight: 77.27 kg

DRUGS (6)
  1. DUPIXENT [Suspect]
     Active Substance: DUPILUMAB
     Indication: Dermatitis atopic
     Dosage: 300 MG, QOW
     Route: 058
     Dates: start: 202309
  2. EUCERIN SKIN CALMING ITCH RELIEF TREATMENT [Concomitant]
     Active Substance: MENTHOL
  3. ATORVASTATIN CALCIUM [Concomitant]
     Active Substance: ATORVASTATIN CALCIUM
  4. MUPIROCIN [Concomitant]
     Active Substance: MUPIROCIN
  5. TACROLIMUS [Concomitant]
     Active Substance: TACROLIMUS
  6. CLOBETASOL PROPIONATE [Concomitant]
     Active Substance: CLOBETASOL PROPIONATE

REACTIONS (7)
  - Dermatitis atopic [Unknown]
  - Dry skin [Unknown]
  - Skin haemorrhage [Unknown]
  - Pruritus [Unknown]
  - Skin weeping [Unknown]
  - Upper respiratory tract infection [Unknown]
  - Skin fissures [Unknown]
